FAERS Safety Report 5568651-9 (Version None)
Quarter: 2007Q4

REPORT INFORMATION
  Report Type: 
  Country: None (occurrence: None)
  Receive Date: 20071220
  Receipt Date: 20071212
  Transmission Date: 20080405
  Serious: Yes (Hospitalization)
  Sender: FDA-Public Use
  Company Number: JP-ASTRAZENECA-2007AP07961

PATIENT
  Age: 66 Year
  Sex: Male

DRUGS (6)
  1. ANAPEINE INJECTION [Suspect]
     Indication: EPIDURAL ANAESTHESIA
     Dosage: DOSE UNKNOWN
     Route: 008
  2. CARBOCAIN INJECTION [Suspect]
     Indication: EPIDURAL ANAESTHESIA
     Dosage: DOSE UNKNOWN
     Route: 008
  3. SEVOFLURANE [Concomitant]
     Indication: MAINTENANCE OF ANAESTHESIA
     Dosage: DOSE UNKNOWN
     Route: 055
  4. NITROUS OXIDE [Concomitant]
     Indication: MAINTENANCE OF ANAESTHESIA
     Dosage: DOSE UNKNOWN
     Route: 055
  5. VECURONIUM BROMIDE [Concomitant]
     Indication: MAINTENANCE OF ANAESTHESIA
     Dosage: DOSE UNKNOWN
     Route: 065
  6. FENTANYL CITRATE [Concomitant]
     Indication: EPIDURAL ANAESTHESIA
     Route: 008

REACTIONS (2)
  - HYPOAESTHESIA [None]
  - MUSCULAR WEAKNESS [None]
